FAERS Safety Report 5735412-7 (Version None)
Quarter: 2008Q2

REPORT INFORMATION
  Report Type: 
  Country: None (occurrence: None)
  Receive Date: 20080508
  Receipt Date: 20080508
  Transmission Date: 20081010
  Serious: Yes (Other)
  Sender: FDA-Public Use
  Company Number: None

PATIENT
  Age: 48 Year
  Sex: Female
  Weight: 81.6475 kg

DRUGS (3)
  1. CREST PROHEALTH MOUTHWASH PROCTER AND GAMBEL [Suspect]
     Indication: GINGIVITIS
     Dosage: EVERYDAY FOR 2 MONTHS 3 TIMES A DAY DENTAL
     Route: 004
     Dates: start: 20080313, end: 20080503
  2. CREST PROHEALTH MOUTHWASH PROCTER AND GAMBEL [Suspect]
     Indication: PERIODONTAL DISEASE
     Dosage: EVERYDAY FOR 2 MONTHS 3 TIMES A DAY DENTAL
     Route: 004
     Dates: start: 20080313, end: 20080503
  3. CREST PROHEALTH TOOTHPASTE PROCTER AND GAMBEL [Suspect]

REACTIONS (3)
  - AGEUSIA [None]
  - GLOSSODYNIA [None]
  - TOOTH DISCOLOURATION [None]
